FAERS Safety Report 10983717 (Version 1)
Quarter: 2015Q2

REPORT INFORMATION
  Report Type: Spontaneous
  Country: KR (occurrence: KR)
  Receive Date: 20150403
  Receipt Date: 20150403
  Transmission Date: 20150821
  Serious: Yes (Hospitalization, Other)
  Sender: FDA-Public Use
  Company Number: KR-PFIZER INC-2015111550

PATIENT
  Age: 4 Decade
  Sex: Female

DRUGS (2)
  1. LEVONIA [Concomitant]
     Dosage: UNK
     Dates: start: 20150319
  2. SAYANA [Suspect]
     Active Substance: MEDROXYPROGESTERONE
     Indication: CONTRACEPTION
     Dosage: 1 DF, SINGLE
     Route: 058
     Dates: start: 20150328, end: 20150328

REACTIONS (8)
  - Cold sweat [Unknown]
  - Quadriplegia [Recovered/Resolved]
  - Nausea [Unknown]
  - Feeling abnormal [Unknown]
  - Blood pressure increased [Recovered/Resolved]
  - Vomiting [Unknown]
  - Dyspnoea [Recovered/Resolved]
  - Hypoaesthesia [Unknown]

NARRATIVE: CASE EVENT DATE: 20150328
